FAERS Safety Report 10931697 (Version 1)
Quarter: 2015Q1

REPORT INFORMATION
  Report Type: Spontaneous
  Country: GB (occurrence: GB)
  Receive Date: 20150319
  Receipt Date: 20150319
  Transmission Date: 20150721
  Serious: Yes (Other)
  Sender: FDA-Public Use
  Company Number: PHHY2015GB029234

PATIENT
  Age: 40 Year
  Sex: Male
  Weight: 116 kg

DRUGS (14)
  1. LANSOPRAZOLE. [Concomitant]
     Active Substance: LANSOPRAZOLE
     Indication: PRODUCT USED FOR UNKNOWN INDICATION
     Dosage: 1 DF, QD
     Route: 065
     Dates: start: 20141203, end: 20150129
  2. NEFOPAM [Concomitant]
     Active Substance: NEFOPAM
     Indication: PRODUCT USED FOR UNKNOWN INDICATION
     Dosage: 2 DF, TID
     Route: 065
     Dates: start: 20141203, end: 20141208
  3. PARACETAMOL [Concomitant]
     Active Substance: ACETAMINOPHEN
     Indication: PAIN
     Dosage: TAKE 1 OR 2
     Route: 065
     Dates: start: 20141208
  4. AVEENO [Concomitant]
     Active Substance: DIMETHICONE\HOMOSALATE\OCTINOXATE\OCTISALATE\TITANIUM DIOXIDE
     Indication: PSORIASIS
     Dosage: 1 DF, BID (MASSGE INTO PSORIATIC PLAQUES WHEN WASHING)
     Route: 065
     Dates: start: 20140416
  5. METHOCARBAMOL. [Concomitant]
     Active Substance: METHOCARBAMOL
     Indication: SCIATICA
     Dosage: 2 DF, UNK
     Route: 065
     Dates: start: 20141208
  6. COAL TAR. [Concomitant]
     Active Substance: COAL TAR
     Indication: PRODUCT USED FOR UNKNOWN INDICATION
     Dosage: USE AS NEEDED
     Route: 065
     Dates: start: 20140924
  7. LYMECYCLINE [Concomitant]
     Active Substance: LYMECYCLINE
     Indication: PRODUCT USED FOR UNKNOWN INDICATION
     Dosage: 1 DF, QD
     Route: 065
     Dates: start: 20140305, end: 20141203
  8. BETAMETHASONE VALERATE. [Concomitant]
     Active Substance: BETAMETHASONE VALERATE
     Indication: PRODUCT USED FOR UNKNOWN INDICATION
     Route: 065
     Dates: start: 20141203, end: 20141210
  9. CALCIPOTRIOL [Concomitant]
     Active Substance: CALCIPOTRIENE
     Indication: PRODUCT USED FOR UNKNOWN INDICATION
     Dosage: 1 DF, QD (APPLY ONCE DAILY TO AFFECTED AREAS-NOT TO FACE)
     Route: 005
     Dates: start: 20131105
  10. METHOTREXATE [Suspect]
     Active Substance: METHOTREXATE
     Indication: PRODUCT USED FOR UNKNOWN INDICATION
     Dosage: 4 DF, QW
     Route: 065
     Dates: start: 20150107
  11. NAPROXEN. [Concomitant]
     Active Substance: NAPROXEN
     Indication: PRODUCT USED FOR UNKNOWN INDICATION
     Dosage: 1 DF, BID (WITH FOOD AND PROTON PUMP INHIBITOR)
     Route: 065
     Dates: start: 20141203, end: 20150121
  12. SOYA OIL [Concomitant]
     Active Substance: SOYBEAN OIL
     Indication: PSORIASIS
     Dosage: UNK
     Route: 065
     Dates: start: 20140910
  13. CHLORHEXIDINE GLUCONATE. [Concomitant]
     Active Substance: CHLORHEXIDINE GLUCONATE
     Indication: PRODUCT USED FOR UNKNOWN INDICATION
     Dosage: USE AS DIRECTED
     Route: 065
     Dates: start: 20140924
  14. COCODAMOL [Concomitant]
     Active Substance: ACETAMINOPHEN\CODEINE PHOSPHATE
     Indication: PRODUCT USED FOR UNKNOWN INDICATION
     Dosage: TAKE 1 OR 2
     Route: 065
     Dates: start: 20141224, end: 20150121

REACTIONS (1)
  - Serum procollagen type III N-terminal propeptide increased [Unknown]

NARRATIVE: CASE EVENT DATE: 20150227
